FAERS Safety Report 25474432 (Version 2)
Quarter: 2025Q3

REPORT INFORMATION
  Report Type: Spontaneous
  Country: EU (occurrence: EU)
  Receive Date: 20250624
  Receipt Date: 20250707
  Transmission Date: 20251020
  Serious: Yes (Hospitalization, Disabling, Other)
  Sender: OTSUKA
  Company Number: EU-OTSUKA-2025_015029

PATIENT
  Age: 12 Day
  Sex: Male

DRUGS (6)
  1. ARIPIPRAZOLE [Suspect]
     Active Substance: ARIPIPRAZOLE
     Indication: Bipolar disorder
     Dosage: 15 MG FOR 24 HOURS (ONCE A DAY)
     Route: 063
  2. LAMOTRIGINE [Suspect]
     Active Substance: LAMOTRIGINE
     Indication: Bipolar disorder
     Dosage: 250 MG FOR 24 HOURS (ONCE A DAY)
     Route: 063
  3. SERTRALINE [Suspect]
     Active Substance: SERTRALINE HYDROCHLORIDE
     Indication: Bipolar disorder
     Dosage: 100 MG FOR 24 HOURS (ONCE A DAY)
     Route: 063
  4. LEVOTHYROXINE [Suspect]
     Active Substance: LEVOTHYROXINE
     Indication: Product used for unknown indication
     Dosage: 50 PG FOR 24 HOURS
     Route: 063
  5. VITAMINS NOS [Suspect]
     Active Substance: VITAMINS
     Indication: Product used for unknown indication
     Route: 063
  6. FOLIC ACID [Concomitant]
     Active Substance: FOLIC ACID
     Indication: Product used for unknown indication
     Route: 065

REACTIONS (12)
  - Disseminated intravascular coagulation [Recovered/Resolved with Sequelae]
  - Dehydration [Recovered/Resolved with Sequelae]
  - Thrombosis [Unknown]
  - Necrosis [Unknown]
  - Toe amputation [Unknown]
  - Gangrene [Recovered/Resolved with Sequelae]
  - Weight decreased [Unknown]
  - Pallor [Unknown]
  - Skin turgor decreased [Unknown]
  - Mucosal dryness [Unknown]
  - Livedo reticularis [Unknown]
  - Exposure via breast milk [Unknown]
